FAERS Safety Report 25906125 (Version 1)
Quarter: 2025Q4

REPORT INFORMATION
  Report Type: Report from Study
  Country: CA (occurrence: CA)
  Receive Date: 20251010
  Receipt Date: 20251010
  Transmission Date: 20260117
  Serious: Yes (Death, Other)
  Sender: IPSEN BIOPHARMACEUTICALS, INC.
  Company Number: CA-IPSEN Group, Research and Development-2025-25000

PATIENT
  Age: 44 Year
  Sex: Female

DRUGS (12)
  1. LANREOTIDE ACETATE [Suspect]
     Active Substance: LANREOTIDE ACETATE
     Indication: Carcinoid syndrome
     Dosage: DEEP SUBCUTANEOUS
     Route: 058
     Dates: start: 20200626, end: 20250610
  2. SPIRONOLACTONE [Concomitant]
     Active Substance: SPIRONOLACTONE
  3. FUROSEMIDE [Concomitant]
     Active Substance: FUROSEMIDE
  4. BETAHISTINE [Concomitant]
     Active Substance: BETAHISTINE
  5. DEXAMETHASONE [Concomitant]
     Active Substance: DEXAMETHASONE
  6. PANTOPRAZOLE [Concomitant]
     Active Substance: PANTOPRAZOLE
  7. PREGABALIN [Concomitant]
     Active Substance: PREGABALIN
  8. HALOPERIDOL [Concomitant]
     Active Substance: HALOPERIDOL
     Dosage: 1 TABLET TWICE DAILY AS NEEDED
  9. SENNOSIDES [Concomitant]
     Active Substance: SENNOSIDES
  10. HYDROMORPHONE [Concomitant]
     Active Substance: HYDROMORPHONE
  11. HYDROMORPHONE [Concomitant]
     Active Substance: HYDROMORPHONE
  12. CABOMETYX [Concomitant]
     Active Substance: CABOZANTINIB S-MALATE

REACTIONS (1)
  - Death [Fatal]

NARRATIVE: CASE EVENT DATE: 20250929
